FAERS Safety Report 18325031 (Version 1)
Quarter: 2020Q3

REPORT INFORMATION
  Report Type: Report from Study
  Country: None (occurrence: US)
  Receive Date: 20200928
  Receipt Date: 20200928
  Transmission Date: 20201103
  Serious: Yes (Hospitalization)
  Sender: FDA-Public Use
  Company Number: US-ABBVIE-20K-163-3482680-00

PATIENT
  Age: 66 Year
  Sex: Female
  Weight: 77.18 kg

DRUGS (1)
  1. HUMIRA [Suspect]
     Active Substance: ADALIMUMAB
     Indication: PSORIASIS
     Route: 058
     Dates: start: 20200108

REACTIONS (15)
  - Cholecystitis [Unknown]
  - Viral infection [Unknown]
  - Pain [Unknown]
  - Chills [Unknown]
  - Asthenia [Unknown]
  - Dehydration [Unknown]
  - Fatigue [Unknown]
  - Weight decreased [Unknown]
  - Therapeutic product effect incomplete [Unknown]
  - Flatulence [Not Recovered/Not Resolved]
  - Dyspnoea [Unknown]
  - Urinary tract infection [Unknown]
  - Gallbladder enlargement [Unknown]
  - Adverse food reaction [Unknown]
  - Decreased appetite [Not Recovered/Not Resolved]

NARRATIVE: CASE EVENT DATE: 2020
